FAERS Safety Report 8389149-9 (Version None)
Quarter: 2012Q2

REPORT INFORMATION
  Report Type: 
  Country: None (occurrence: None)
  Receive Date: 20120528
  Receipt Date: 20120523
  Transmission Date: 20120825
  Serious: Yes (Other)
  Sender: FDA-Public Use
  Company Number: PHHY2012JP034574

PATIENT
  Age: 82 Year

DRUGS (6)
  1. AMLODIPINE [Concomitant]
     Dosage: 2 MG, UNK
     Route: 048
  2. MEXITIL [Concomitant]
     Dosage: 300 MG, UNK
  3. FAMOTIDINE [Concomitant]
     Dosage: 10 MG, UNK
  4. DIOVAN [Suspect]
     Indication: HYPERTENSION
     Dosage: 40 MG, ONCE DAILY
     Route: 048
  5. ADALAT [Concomitant]
     Dosage: 20 MG, UNK
     Route: 048
  6. LASIX [Concomitant]
     Dosage: 10 MG, UNK

REACTIONS (1)
  - RENAL IMPAIRMENT [None]
